FAERS Safety Report 20942798 (Version 4)
Quarter: 2022Q4

REPORT INFORMATION
  Report Type: Spontaneous
  Country: AU (occurrence: AU)
  Receive Date: 20220610
  Receipt Date: 20221229
  Transmission Date: 20230113
  Serious: Yes (Other)
  Sender: FDA-Public Use
  Company Number: AU-BAUSCH-BL-2022-014285

PATIENT
  Age: 53 Year
  Sex: Female

DRUGS (12)
  1. HYDROCORTISONE [Suspect]
     Active Substance: HYDROCORTISONE
     Indication: Vipoma
     Route: 042
     Dates: start: 2016, end: 2016
  2. HYDROCORTISONE [Suspect]
     Active Substance: HYDROCORTISONE
     Indication: Product use in unapproved indication
  3. PREDNISOLONE [Suspect]
     Active Substance: PREDNISOLONE
     Indication: Vipoma
     Route: 048
     Dates: start: 2016, end: 2016
  4. LANREOTIDE [Concomitant]
     Active Substance: LANREOTIDE
     Indication: Diarrhoea
     Dates: start: 201502
  5. LANREOTIDE [Concomitant]
     Active Substance: LANREOTIDE
     Dosage: UP-TITRATION
  6. CODEINE [Concomitant]
     Active Substance: CODEINE
     Indication: Diarrhoea
  7. LOPERAMIDE [Concomitant]
     Active Substance: LOPERAMIDE
     Indication: Diarrhoea
  8. ATROPINE\DIPHENOXYLATE [Concomitant]
     Active Substance: ATROPINE\DIPHENOXYLATE
     Indication: Diarrhoea
  9. CREON [Concomitant]
     Active Substance: PANCRELIPASE AMYLASE\PANCRELIPASE LIPASE\PANCRELIPASE PROTEASE
     Indication: Diarrhoea
  10. FOLFOX6 [Concomitant]
     Indication: Neuroendocrine tumour
     Dosage: TWO CYCLES
     Dates: start: 2016, end: 2016
  11. OCTREOTIDE [Concomitant]
     Active Substance: OCTREOTIDE
     Indication: Neuroendocrine tumour
     Dates: start: 2016
  12. INTERFERON [Concomitant]
     Active Substance: INTERFERON
     Indication: Neuroendocrine tumour
     Dosage: HIGH DOSE
     Dates: start: 2016

REACTIONS (3)
  - Cushing^s syndrome [Unknown]
  - Steroid diabetes [Unknown]
  - Product use in unapproved indication [Unknown]
